FAERS Safety Report 5641579-1 (Version None)
Quarter: 2008Q1

REPORT INFORMATION
  Report Type: 
  Country: None (occurrence: None)
  Receive Date: 20080227
  Receipt Date: 20071115
  Transmission Date: 20080703
  Serious: No
  Sender: FDA-Public Use
  Company Number: A0694717A

PATIENT
  Age: 48 Year
  Sex: Male

DRUGS (1)
  1. TARGET ORIGINAL 2MG [Suspect]

REACTIONS (3)
  - RASH [None]
  - RASH GENERALISED [None]
  - URTICARIA [None]
